FAERS Safety Report 5669327-X (Version None)
Quarter: 2008Q1

REPORT INFORMATION
  Report Type: 
  Country: None (occurrence: None)
  Receive Date: 20080317
  Receipt Date: 20080313
  Transmission Date: 20080703
  Serious: Yes (Other)
  Sender: FDA-Public Use
  Company Number: PHNU2008DE01016

PATIENT
  Age: 61 Year
  Sex: Female
  Weight: 53 kg

DRUGS (1)
  1. RASILEZ [Suspect]
     Dosage: 1 DF, QD
     Route: 048
     Dates: start: 20070915

REACTIONS (17)
  - ABDOMINAL PAIN [None]
  - APHONIA [None]
  - BRONCHIAL IRRITATION [None]
  - BRONCHOSPASM [None]
  - CHEST DISCOMFORT [None]
  - DIARRHOEA [None]
  - DYSPHAGIA [None]
  - FOOD ALLERGY [None]
  - HYPERSENSITIVITY [None]
  - LACRIMATION INCREASED [None]
  - NAUSEA [None]
  - PHARYNGEAL OEDEMA [None]
  - PHARYNGOLARYNGEAL PAIN [None]
  - PRURITUS [None]
  - RHINORRHOEA [None]
  - SKIN DISORDER [None]
  - THROAT IRRITATION [None]
